FAERS Safety Report 10191273 (Version 1)
Quarter: 2014Q2

REPORT INFORMATION
  Report Type: Spontaneous
  Country: US (occurrence: None)
  Receive Date: 20140521
  Receipt Date: 20140521
  Transmission Date: 20141212
  Serious: Yes (Death)
  Sender: FDA-Public Use
  Company Number: 2014EXPUS00043

PATIENT
  Age: 60 Year
  Sex: Male

DRUGS (2)
  1. EXPAREL (BUPIVACAINE) LIPOSOME INJECTABLE SUSPENSION, MG/ML [Suspect]
     Indication: POSTOPERATIVE ANALGESIA
     Dosage: 60 ML FROM A DILUTION OF 20 ML IN 100 ML
     Route: 030
     Dates: start: 20140505, end: 20140505
  2. MARCAINE (BUPIVACAINE) 900 MG/ML [Concomitant]

REACTIONS (1)
  - Arrhythmia [None]
